FAERS Safety Report 9447492 (Version 1)
Quarter: 2013Q3

REPORT INFORMATION
  Report Type: Spontaneous
  Country: US (occurrence: US)
  Receive Date: 20130808
  Receipt Date: 20130808
  Transmission Date: 20140515
  Serious: No
  Sender: FDA-Public Use
  Company Number: US-PFIZER INC-2013225466

PATIENT
  Age: 62 Year
  Sex: Female
  Weight: 72.56 kg

DRUGS (2)
  1. LEVOTHYROXINE SODIUM [Suspect]
     Indication: HYPOTHYROIDISM
     Dosage: UNK, 1X/DAY
     Route: 048
  2. VITAMIN D [Concomitant]
     Dosage: UNK

REACTIONS (1)
  - Abdominal discomfort [Unknown]
